FAERS Safety Report 7443360-X (Version None)
Quarter: 2011Q2

REPORT INFORMATION
  Report Type: 
  Country: None (occurrence: None)
  Receive Date: 20110428
  Receipt Date: 20110419
  Transmission Date: 20111010
  Serious: Yes (Hospitalization, Other)
  Sender: FDA-Public Use
  Company Number: PHHY2011US33873

PATIENT
  Age: 38 Year
  Sex: Female

DRUGS (5)
  1. WELLBUTRIN XL [Concomitant]
     Indication: DEPRESSION
     Dosage: 300 MG, DAILY
     Route: 048
     Dates: start: 20050301
  2. CELLCEPT [Concomitant]
     Dosage: 2000 MG,
     Route: 048
     Dates: start: 19991014
  3. ASPIRIN [Concomitant]
     Indication: PROPHYLAXIS
  4. NEORAL [Suspect]
     Indication: TRANSPLANT REJECTION
     Dosage: 200 MG, DAILY
     Route: 048
     Dates: start: 20060801
  5. ASPIRIN [Concomitant]
     Indication: BLOOD PRESSURE
     Dosage: 81 MG, DAILY
     Route: 048
     Dates: start: 19991014

REACTIONS (4)
  - ADNEXA UTERI MASS [None]
  - ABDOMINAL PAIN [None]
  - HYPERLIPIDAEMIA [None]
  - SQUAMOUS CELL CARCINOMA OF SKIN [None]
